FAERS Safety Report 12560781 (Version 4)
Quarter: 2016Q3

REPORT INFORMATION
  Report Type: Spontaneous
  Country: US (occurrence: US)
  Receive Date: 20160715
  Receipt Date: 20160923
  Transmission Date: 20161109
  Serious: Yes (Other)
  Sender: FDA-Public Use
  Company Number: US-009507513-1607USA000659

PATIENT
  Age: 26 Year
  Sex: Female
  Weight: 188 kg

DRUGS (1)
  1. NEXPLANON [Suspect]
     Active Substance: ETONOGESTREL
     Indication: CONTRACEPTION
     Dosage: 1 DF, UNK
     Route: 059
     Dates: start: 20160330, end: 20160518

REACTIONS (9)
  - Discomfort [Unknown]
  - Complication of device removal [Recovered/Resolved]
  - Implant site pain [Recovered/Resolved]
  - Mood swings [Recovered/Resolved]
  - Implant site mass [Unknown]
  - Keloid scar [Recovered/Resolved]
  - Pain [Recovered/Resolved]
  - Device breakage [Recovered/Resolved]
  - Fatigue [Recovered/Resolved]

NARRATIVE: CASE EVENT DATE: 2016
